FAERS Safety Report 9332465 (Version 1)
Quarter: 2013Q2

REPORT INFORMATION
  Report Type: Spontaneous
  Country: US (occurrence: US)
  Receive Date: 20130606
  Receipt Date: 20130606
  Transmission Date: 20140414
  Serious: Yes (Other)
  Sender: FDA-Public Use
  Company Number: US-BAYER-2013-068303

PATIENT
  Age: 6 Year
  Sex: Male

DRUGS (2)
  1. KOGENATE FS [Suspect]
  2. FACTOR VIII, RECOMBINANT [Suspect]
     Indication: FACTOR VIII DEFICIENCY

REACTIONS (1)
  - Anti factor VIII antibody positive [Recovering/Resolving]
